FAERS Safety Report 10473736 (Version 1)
Quarter: 2014Q3

REPORT INFORMATION
  Report Type: Other
  Country: US (occurrence: US)
  Receive Date: 20140924
  Receipt Date: 20140924
  Transmission Date: 20150326
  Serious: Yes (Other)
  Sender: FDA-Public Use
  Company Number: US-BRISTOL-MYERS SQUIBB COMPANY-21431655

PATIENT
  Age: 60 Year
  Sex: Female

DRUGS (1)
  1. IFOSFAMIDE. [Suspect]
     Active Substance: IFOSFAMIDE
     Indication: MALIGNANT PERITONEAL NEOPLASM

REACTIONS (2)
  - Hallucination, visual [Unknown]
  - Encephalopathy [Unknown]
